FAERS Safety Report 15967567 (Version 1)
Quarter: 2019Q1

REPORT INFORMATION
  Report Type: Spontaneous
  Country: PR (occurrence: PR)
  Receive Date: 20190215
  Receipt Date: 20190215
  Transmission Date: 20190418
  Serious: No
  Sender: FDA-Public Use
  Company Number: PR-JNJFOC-20190118190

PATIENT
  Age: 69 Year
  Sex: Male
  Weight: 77.57 kg

DRUGS (2)
  1. MENS ROGAINE EXTRA STRENGTH UNSCENTED [Suspect]
     Active Substance: MINOXIDIL
     Route: 061
  2. MENS ROGAINE EXTRA STRENGTH UNSCENTED [Suspect]
     Active Substance: MINOXIDIL
     Indication: ALOPECIA
     Dosage: LESS THAN A HALF CAP FULL
     Route: 061
     Dates: start: 20181003, end: 20181223

REACTIONS (4)
  - Headache [Recovered/Resolved]
  - Cerebral disorder [Not Recovered/Not Resolved]
  - Vision blurred [Recovered/Resolved]
  - Underdose [Unknown]

NARRATIVE: CASE EVENT DATE: 20181003
